FAERS Safety Report 9438622 (Version 1)
Quarter: 2013Q3

REPORT INFORMATION
  Report Type: Report from Study
  Country: US (occurrence: US)
  Receive Date: 20130802
  Receipt Date: 20130802
  Transmission Date: 20140515
  Serious: Yes (Other)
  Sender: FDA-Public Use
  Company Number: US-ASTRAZENECA-2013SE48736

PATIENT
  Age: 42 Year
  Sex: Male
  Weight: 99.8 kg

DRUGS (5)
  1. SEROQUEL [Suspect]
     Indication: SCHIZOPHRENIA, PARANOID TYPE
     Route: 048
     Dates: end: 201305
  2. NEXIUM [Suspect]
     Indication: GASTROOESOPHAGEAL REFLUX DISEASE
     Route: 048
     Dates: end: 201305
  3. NEXIUM [Suspect]
     Indication: GASTROOESOPHAGEAL REFLUX DISEASE
     Route: 048
  4. LORACET [Concomitant]
     Indication: BACK DISORDER
     Dosage: 7.5 MG, DAILY
  5. CLONOPIN [Concomitant]

REACTIONS (9)
  - Drug withdrawal convulsions [Unknown]
  - Upper limb fracture [Unknown]
  - Lower limb fracture [Unknown]
  - Schizophrenia, paranoid type [Unknown]
  - Gastrooesophageal reflux disease [Unknown]
  - Paranoid personality disorder [Unknown]
  - Back disorder [Unknown]
  - Drug dose omission [Unknown]
  - Intentional drug misuse [Unknown]
